FAERS Safety Report 22609271 (Version 1)
Quarter: 2023Q2

REPORT INFORMATION
  Report Type: Spontaneous
  Country: US (occurrence: US)
  Receive Date: 20230616
  Receipt Date: 20230616
  Transmission Date: 20230721
  Serious: Yes (Hospitalization)
  Sender: FDA-Public Use
  Company Number: US-GLAXOSMITHKLINE-US2023AMR082119

PATIENT

DRUGS (3)
  1. LAMOTRIGINE [Suspect]
     Active Substance: LAMOTRIGINE
     Indication: Product used for unknown indication
     Dosage: UNK
  2. INGREZZA [Suspect]
     Active Substance: VALBENAZINE
     Indication: Tardive dyskinesia
     Dosage: 80 MG, QD
     Dates: start: 20220520
  3. INGREZZA [Suspect]
     Active Substance: VALBENAZINE
     Dosage: 40 MG, QD
     Dates: start: 20220829

REACTIONS (4)
  - Hospitalisation [Recovered/Resolved]
  - Dizziness [Unknown]
  - Balance disorder [Unknown]
  - Dyskinesia [Unknown]
